FAERS Safety Report 7119130-9 (Version None)
Quarter: 2010Q4

REPORT INFORMATION
  Report Type: 
  Country: None (occurrence: None)
  Receive Date: 20101123
  Receipt Date: 20091214
  Transmission Date: 20110411
  Serious: No
  Sender: FDA-Public Use
  Company Number: US-MYLANLABS-2009S1020762

PATIENT
  Age: 61 Year
  Sex: Female
  Weight: 113.4 kg

DRUGS (8)
  1. AMLODIPINE BESYLATE [Suspect]
     Indication: HYPERTENSION
     Route: 048
     Dates: start: 20090301
  2. AMLODIPINE BESYLATE [Suspect]
     Route: 048
  3. MEFORMIN [Concomitant]
     Indication: TYPE 2 DIABETES MELLITUS
     Route: 048
  4. TYLENOL (CAPLET) [Concomitant]
     Indication: PAIN
     Dosage: Q8H PRN FOR PAIN
     Route: 048
  5. NIZORAL [Concomitant]
  6. BUMEX [Concomitant]
  7. VICODIN [Concomitant]
  8. DIOVAN [Concomitant]

REACTIONS (1)
  - NIGHTMARE [None]
